FAERS Safety Report 5955983-5 (Version None)
Quarter: 2008Q4

REPORT INFORMATION
  Report Type: 
  Country: None (occurrence: None)
  Receive Date: 20081112
  Receipt Date: 20081031
  Transmission Date: 20090506
  Serious: No
  Sender: FDA-Public Use
  Company Number: 060009J08USA

PATIENT
  Age: 40 Year
  Sex: Female

DRUGS (1)
  1. SEROPHENE [Suspect]
     Indication: ANOVULATORY CYCLE
     Dosage: 50 MG; 3 CYCLE

REACTIONS (1)
  - ABORTION SPONTANEOUS [None]
